FAERS Safety Report 16873594 (Version 6)
Quarter: 2021Q2

REPORT INFORMATION
  Report Type: Report from Study
  Country: None (occurrence: GB)
  Receive Date: 20191001
  Receipt Date: 20210427
  Transmission Date: 20210716
  Serious: Yes (Hospitalization)
  Sender: FDA-Public Use
  Company Number: GB-ABBVIE-19P-167-2939988-00

PATIENT
  Age: 46 Year
  Sex: Female
  Weight: 62 kg

DRUGS (13)
  1. MESALAZINE [Concomitant]
     Active Substance: MESALAMINE
     Indication: COLITIS ULCERATIVE
     Route: 054
     Dates: start: 20180525, end: 20181017
  2. MOVICOL [Concomitant]
     Active Substance: POLYETHYLENE GLYCOL 3350\POTASSIUM CHLORIDE\SODIUM BICARBONATE\SODIUM CHLORIDE
     Indication: CONSTIPATION
     Route: 048
     Dates: start: 20171122
  3. HUMIRA [Suspect]
     Active Substance: ADALIMUMAB
     Indication: COLITIS ULCERATIVE
     Route: 058
     Dates: start: 20180226, end: 20190422
  4. 6?MP [Suspect]
     Active Substance: MERCAPTOPURINE
     Route: 048
     Dates: start: 20200527, end: 202006
  5. CERELLE [Concomitant]
     Active Substance: DESOGESTREL
     Indication: CONTRACEPTION
     Route: 048
     Dates: start: 20170419, end: 202011
  6. SERTRALINE [Concomitant]
     Active Substance: SERTRALINE HYDROCHLORIDE
     Route: 048
     Dates: start: 20200504
  7. 6?MP [Suspect]
     Active Substance: MERCAPTOPURINE
     Dosage: UNABLE TO TOLERATE, ADVISED TO TRY X2 SMALL DOSES 2 A DAY.
     Route: 048
     Dates: start: 20200518, end: 20200527
  8. SERTRALINE [Concomitant]
     Active Substance: SERTRALINE HYDROCHLORIDE
     Indication: DEPRESSED MOOD
     Route: 048
     Dates: start: 2018, end: 20200504
  9. 6?MP [Suspect]
     Active Substance: MERCAPTOPURINE
     Route: 048
     Dates: start: 202006, end: 202009
  10. MESALAZINE [Concomitant]
     Active Substance: MESALAMINE
     Route: 054
     Dates: start: 20171017
  11. 6?MP [Suspect]
     Active Substance: MERCAPTOPURINE
     Indication: COLITIS ULCERATIVE
     Dosage: PATIENT UNABLE TO TOLERATE 50MG IN ONE DOSE.
     Route: 048
     Dates: start: 20200427, end: 20200518
  12. SERTRALINE [Concomitant]
     Active Substance: SERTRALINE HYDROCHLORIDE
     Indication: ANXIETY DISORDER
     Route: 048
     Dates: start: 20150902, end: 2018
  13. SALOFALK [Concomitant]
     Indication: COLITIS ULCERATIVE
     Route: 048
     Dates: start: 20200622

REACTIONS (6)
  - Anal fissure [Not Recovered/Not Resolved]
  - Constipation [Recovered/Resolved]
  - Fatigue [Recovered/Resolved]
  - Colitis ulcerative [Recovered/Resolved]
  - Constipation [Not Recovered/Not Resolved]
  - Haemorrhoids [Not Recovered/Not Resolved]

NARRATIVE: CASE EVENT DATE: 201812
